FAERS Safety Report 9151090 (Version 1)
Quarter: 2013Q1

REPORT INFORMATION
  Report Type: Report from Study
  Country: DE (occurrence: DE)
  Receive Date: 20130308
  Receipt Date: 20130308
  Transmission Date: 20140127
  Serious: Yes (Hospitalization)
  Sender: FDA-Public Use
  Company Number: DE-ROCHE-1199862

PATIENT
  Age: 75 Year
  Sex: Male

DRUGS (5)
  1. TOCILIZUMAB [Suspect]
     Indication: RHEUMATOID ARTHRITIS
     Route: 065
     Dates: start: 200908
  2. METHOTREXATE [Suspect]
     Indication: RHEUMATOID ARTHRITIS
     Route: 048
     Dates: start: 200808
  3. PREDNISOLON [Concomitant]
  4. SIMVASTATIN [Concomitant]
  5. FOLIC ACID [Concomitant]

REACTIONS (1)
  - Pulmonary embolism [Recovered/Resolved]
